FAERS Safety Report 22650819 (Version 1)
Quarter: 2023Q2

REPORT INFORMATION
  Report Type: Spontaneous
  Country: US (occurrence: US)
  Receive Date: 20230628
  Receipt Date: 20230628
  Transmission Date: 20230722
  Serious: No
  Sender: FDA-Public Use
  Company Number: US-BRISTOL-MYERS SQUIBB COMPANY-2023-090766

PATIENT
  Age: 62 Year
  Sex: Female

DRUGS (1)
  1. POMALYST [Suspect]
     Active Substance: POMALIDOMIDE
     Indication: Product used for unknown indication
     Dosage: FREQUENCY: DAILY FOR 21 DAYS ON THEN 7 DAYS OFF TO TAKE MONDAY TO FRIDAY FOR 3 WEEKS ON THEN 1 WEEK
     Route: 048
     Dates: start: 202305

REACTIONS (2)
  - White blood cell count decreased [Unknown]
  - Off label use [Unknown]

NARRATIVE: CASE EVENT DATE: 20230622
